FAERS Safety Report 6165341-9 (Version None)
Quarter: 2009Q2

REPORT INFORMATION
  Report Type: 
  Country: None (occurrence: None)
  Receive Date: 20090421
  Receipt Date: 20090421
  Transmission Date: 20091009
  Serious: Yes (Hospitalization, Disabling)
  Sender: FDA-Public Use
  Company Number: None

PATIENT
  Sex: Female
  Weight: 14.1 kg

DRUGS (2)
  1. VINCRISTINE [Suspect]
     Indication: OPTIC NERVE GLIOMA
     Dosage: 0.9MG IV BOLUS
     Route: 040
     Dates: start: 20090416, end: 20090416
  2. CATHETERIZATION [Concomitant]

REACTIONS (2)
  - DYSURIA [None]
  - URINARY RETENTION [None]
